FAERS Safety Report 13206092 (Version 1)
Quarter: 2017Q1

REPORT INFORMATION
  Report Type: Spontaneous
  Country: US (occurrence: US)
  Receive Date: 20170209
  Receipt Date: 20170209
  Transmission Date: 20170428
  Serious: No
  Sender: FDA-Public Use
  Company Number: US-TEVA-734261ACC

PATIENT
  Age: 23 Year
  Sex: Female

DRUGS (9)
  1. BACLOFEN TAB 10 MG [Concomitant]
     Dosage: 1 MILLIGRAM DAILY;
     Dates: start: 20161103
  2. GABAPENTIN TAB 800 MG [Concomitant]
     Dosage: 3600 MILLIGRAM DAILY;
     Dates: start: 20160726
  3. TEGRETOL TAB 200 MG [Concomitant]
     Dates: start: 20160726
  4. PRAZOSIN HCL CAP 2 MG [Concomitant]
     Dates: start: 20151231
  5. COPAXONE [Suspect]
     Active Substance: GLATIRAMER ACETATE
     Indication: MULTIPLE SCLEROSIS
     Dosage: 17.1429 MILLIGRAM DAILY;
     Route: 058
     Dates: start: 20160105
  6. COENZYME Q10 CAP 100 MG [Concomitant]
     Dates: start: 20151231
  7. FISH OIL CAP 1000 MG [Concomitant]
     Dates: start: 20151231
  8. RESTORIL CAP 15 MG [Concomitant]
     Dates: start: 20151231
  9. LITHIUM CARB CAP 600 MG [Concomitant]
     Dates: start: 20151231

REACTIONS (4)
  - Cognitive disorder [Unknown]
  - Arthralgia [Unknown]
  - Rash [Unknown]
  - Injection site reaction [Not Recovered/Not Resolved]

NARRATIVE: CASE EVENT DATE: 20161116
